FAERS Safety Report 15699567 (Version 3)
Quarter: 2019Q1

REPORT INFORMATION
  Report Type: Spontaneous
  Country: BR (occurrence: BR)
  Receive Date: 20181207
  Receipt Date: 20190121
  Transmission Date: 20190417
  Serious: Yes (Other)
  Sender: FDA-Public Use
  Company Number: BR-009507513-1812BRA000530

PATIENT
  Age: 67 Year
  Sex: Female
  Weight: 58 kg

DRUGS (4)
  1. VYTORIN [Suspect]
     Active Substance: EZETIMIBE\SIMVASTATIN
     Indication: BLOOD CHOLESTEROL ABNORMAL
     Dosage: 10MG/20MG, 1 TABLET, ONCE A DAY AFTER DINNER
     Route: 048
     Dates: start: 2010
  2. VYTORIN [Suspect]
     Active Substance: EZETIMIBE\SIMVASTATIN
     Dosage: 10MG/20MG, TWICE A DAY
     Dates: start: 2018
  3. VYTORIN [Suspect]
     Active Substance: EZETIMIBE\SIMVASTATIN
     Dosage: 10MG/20MG, ONCE DAILY
  4. VYTORIN [Suspect]
     Active Substance: EZETIMIBE\SIMVASTATIN
     Dosage: 10MG/20MG, 1 TABLET, ONCE A DAY
     Route: 048

REACTIONS (6)
  - Blood cholesterol increased [Recovering/Resolving]
  - Product availability issue [Unknown]
  - Product dose omission [Unknown]
  - Cataract [Recovered/Resolved]
  - Intraocular pressure increased [Recovered/Resolved]
  - Intentional product misuse [Unknown]

NARRATIVE: CASE EVENT DATE: 2013
